FAERS Safety Report 8123698-3 (Version None)
Quarter: 2012Q1

REPORT INFORMATION
  Report Type: 
  Country: None (occurrence: None)
  Receive Date: 20120208
  Receipt Date: 20120202
  Transmission Date: 20120608
  Serious: Yes (Death, Other)
  Sender: FDA-Public Use
  Company Number: US-ELI_LILLY_AND_COMPANY-US201110004547

PATIENT
  Sex: Male

DRUGS (12)
  1. SIMVASTATIN [Concomitant]
     Dosage: 20 MG, QD
     Route: 048
  2. METFORMIN HCL [Concomitant]
     Dosage: 1000 MG, EACH MORNING
     Route: 048
  3. LEVEMIR [Concomitant]
     Dosage: 60 U, QD
  4. BYETTA [Suspect]
     Dosage: UNK, UNKNOWN
  5. BYETTA [Suspect]
     Dosage: 10 UG, UNKNOWN
     Route: 058
     Dates: start: 20070713, end: 20070906
  6. TRIAMTERENE AND HYDROCHLOROTHIAZIDE [Concomitant]
  7. ALTACE [Concomitant]
     Dosage: 5 MG, QD
     Route: 048
  8. AVODART [Concomitant]
     Dosage: 0.5 MG, QD
     Route: 048
  9. BISOPROLOL FUMARATE [Concomitant]
     Dosage: 5 MG, EACH MORNING
     Route: 048
  10. ASPIRIN [Concomitant]
     Dosage: 81 MG, QD
     Route: 048
  11. METFORMIN HCL [Concomitant]
     Dosage: 500 MG, EACH EVENING
     Route: 048
  12. GLYBURIDE [Concomitant]
     Dosage: 3 MG, BID

REACTIONS (3)
  - PANCREATIC CARCINOMA [None]
  - HEPATIC NEOPLASM MALIGNANT [None]
  - LUNG ADENOCARCINOMA [None]
